FAERS Safety Report 9667165 (Version 1)
Quarter: 2013Q4

REPORT INFORMATION
  Report Type: Spontaneous
  Country: US (occurrence: US)
  Receive Date: 20131104
  Receipt Date: 20131104
  Transmission Date: 20140711
  Serious: No
  Sender: FDA-Public Use
  Company Number: US-BIOGENIDEC-2013BI090314

PATIENT
  Age: 41 Year
  Sex: Male

DRUGS (4)
  1. TECFIDERA [Suspect]
     Indication: MULTIPLE SCLEROSIS
     Route: 048
     Dates: start: 20130807
  2. FISH OIL [Concomitant]
  3. PROBIOTIC [Concomitant]
  4. ACIDOPHILUS EX ST [Concomitant]

REACTIONS (2)
  - Monoplegia [Recovered/Resolved]
  - Paralysis [Recovered/Resolved]
